FAERS Safety Report 7034374-2 (Version None)
Quarter: 2010Q4

REPORT INFORMATION
  Report Type: 
  Country: None (occurrence: None)
  Receive Date: 20101008
  Receipt Date: 20101005
  Transmission Date: 20110411
  Serious: Yes (Death, Other)
  Sender: FDA-Public Use
  Company Number: JP-JNJFOC-20100808476

PATIENT
  Sex: Male
  Weight: 50 kg

DRUGS (5)
  1. DUROTEP MT [Suspect]
     Indication: CANCER PAIN
     Route: 062
  2. HOKUNALIN [Suspect]
     Indication: DYSPNOEA
     Route: 062
  3. VOLTAREN [Concomitant]
     Indication: CANCER PAIN
     Route: 054
  4. ANPEC [Concomitant]
     Indication: CANCER PAIN
     Route: 054
  5. LENDORMIN D [Concomitant]
     Indication: INSOMNIA
     Route: 048

REACTIONS (2)
  - LUNG ADENOCARCINOMA [None]
  - TOXIC SKIN ERUPTION [None]
